FAERS Safety Report 15725715 (Version 2)
Quarter: 2019Q1

REPORT INFORMATION
  Report Type: Spontaneous
  Country: US (occurrence: US)
  Receive Date: 20181215
  Receipt Date: 20190227
  Transmission Date: 20190417
  Serious: Yes (Hospitalization)
  Sender: FDA-Public Use
  Company Number: US-JNJFOC-20181203614

PATIENT
  Age: 39 Year
  Sex: Female

DRUGS (3)
  1. XARELTO [Suspect]
     Active Substance: RIVAROXABAN
     Indication: THROMBOSIS PROPHYLAXIS
     Route: 048
     Dates: start: 20161101, end: 20180104
  2. XARELTO [Suspect]
     Active Substance: RIVAROXABAN
     Indication: DEEP VEIN THROMBOSIS
     Route: 048
     Dates: start: 20161101, end: 20180104
  3. XARELTO [Suspect]
     Active Substance: RIVAROXABAN
     Indication: VON WILLEBRAND^S DISEASE
     Route: 048
     Dates: start: 20161101, end: 20180104

REACTIONS (4)
  - Incorrect dose administered [Unknown]
  - Upper gastrointestinal haemorrhage [Recovering/Resolving]
  - Off label use [Unknown]
  - Menorrhagia [Recovering/Resolving]

NARRATIVE: CASE EVENT DATE: 20161101
